FAERS Safety Report 21016826 (Version 1)
Quarter: 2022Q2

REPORT INFORMATION
  Report Type: Spontaneous
  Country: US (occurrence: US)
  Receive Date: 20220628
  Receipt Date: 20220628
  Transmission Date: 20220721
  Serious: No
  Sender: FDA-Public Use
  Company Number: US-PFIZER INC-202200902403

PATIENT
  Age: 68 Year
  Sex: Female
  Weight: 68.04 kg

DRUGS (5)
  1. PAXLOVID [Suspect]
     Active Substance: NIRMATRELVIR\RITONAVIR
     Indication: COVID-19 treatment
     Dosage: 150 MG TIMES 2-100 MG (3 TABLETS) TWICE A DAY
     Route: 048
     Dates: start: 20220613, end: 20220618
  2. LEVOTHYROXINE [Concomitant]
     Active Substance: LEVOTHYROXINE
     Dosage: 0.05 MG
  3. LIOTHYRONINE [Concomitant]
     Active Substance: LIOTHYRONINE
     Dosage: 5 UG
  4. MONTELUKAST [Concomitant]
     Active Substance: MONTELUKAST SODIUM
     Indication: Asthma
     Dosage: 10 MG
  5. FLUOXETINE [Concomitant]
     Active Substance: FLUOXETINE HYDROCHLORIDE
     Dosage: 20 MG

REACTIONS (9)
  - COVID-19 [Unknown]
  - Disease recurrence [Unknown]
  - Feeling abnormal [Unknown]
  - Headache [Unknown]
  - Back pain [Unknown]
  - Sneezing [Unknown]
  - Head discomfort [Unknown]
  - Oropharyngeal pain [Unknown]
  - Condition aggravated [Unknown]
